FAERS Safety Report 13460283 (Version 2)
Quarter: 2017Q2

REPORT INFORMATION
  Report Type: Spontaneous
  Country: BR (occurrence: BR)
  Receive Date: 20170420
  Receipt Date: 20170420
  Transmission Date: 20170830
  Serious: Yes (Other)
  Sender: FDA-Public Use
  Company Number: BR-JNJFOC-20170415384

PATIENT
  Sex: Female

DRUGS (1)
  1. SIMPONI [Suspect]
     Active Substance: GOLIMUMAB
     Indication: RHEUMATOID ARTHRITIS
     Route: 058
     Dates: start: 20170308

REACTIONS (8)
  - Hypersensitivity [Unknown]
  - Oedema peripheral [Unknown]
  - Chills [Unknown]
  - Rheumatoid arthritis [Unknown]
  - Mycotic allergy [Unknown]
  - Skin discolouration [Unknown]
  - Rheumatoid lung [Unknown]
  - Pruritus [Not Recovered/Not Resolved]

NARRATIVE: CASE EVENT DATE: 2017
